FAERS Safety Report 23788296 (Version 1)
Quarter: 2024Q2

REPORT INFORMATION
  Report Type: Spontaneous
  Country: RU (occurrence: None)
  Receive Date: 20240426
  Receipt Date: 20240426
  Transmission Date: 20240716
  Serious: Yes (Other)
  Sender: FDA-Public Use
  Company Number: RU-ROCHE-3550689

PATIENT
  Age: 3 Year
  Sex: Male

DRUGS (2)
  1. EMICIZUMAB [Suspect]
     Active Substance: EMICIZUMAB
     Indication: Factor VIII deficiency
     Dosage: ONCE A WEEK FOR WEEKS 1-4, THEN 1.5 MG/KG ONCE A WEEK FROM WEEK 5.
     Route: 058
     Dates: start: 202304
  2. EMICIZUMAB [Suspect]
     Active Substance: EMICIZUMAB
     Route: 058

REACTIONS (2)
  - Brachydactyly [Unknown]
  - Ecchymosis [Recovered/Resolved]

NARRATIVE: CASE EVENT DATE: 20240131
